FAERS Safety Report 9137929 (Version 1)
Quarter: 2013Q1

REPORT INFORMATION
  Report Type: Spontaneous
  Country: US (occurrence: US)
  Receive Date: 20130304
  Receipt Date: 20130304
  Transmission Date: 20140127
  Serious: No
  Sender: FDA-Public Use
  Company Number: US-ABBOTT-12P-163-0986439-00

PATIENT
  Age: 81 Year
  Sex: Male
  Weight: 93.07 kg

DRUGS (5)
  1. ANDROGEL [Suspect]
     Indication: BLOOD TESTOSTERONE DECREASED
     Dosage: SHOULDERS
  2. UNKNOWN STATIN MEDICATION [Concomitant]
     Indication: BLOOD TRIGLYCERIDES INCREASED
  3. NEXIUM [Concomitant]
     Indication: DYSPEPSIA
  4. FLOMAX [Concomitant]
     Indication: PROSTATIC DISORDER
  5. TESTOSTERONE [Concomitant]
     Indication: PRODUCT USED FOR UNKNOWN INDICATION
     Dates: start: 201205

REACTIONS (8)
  - Back pain [Recovered/Resolved]
  - Neck pain [Recovered/Resolved]
  - Arthralgia [Recovered/Resolved]
  - Prostatomegaly [Recovering/Resolving]
  - Dysuria [Recovering/Resolving]
  - Urine flow decreased [Recovering/Resolving]
  - Asthenia [Recovered/Resolved]
  - Blood testosterone abnormal [Recovered/Resolved]
